FAERS Safety Report 4752248-4 (Version None)
Quarter: 2005Q3

REPORT INFORMATION
  Report Type: 
  Country: None (occurrence: None)
  Receive Date: 20050822
  Receipt Date: 20050822
  Transmission Date: 20060218
  Serious: Yes (Hospitalization, Other)
  Sender: FDA-Public Use
  Company Number: None

PATIENT
  Sex: Male
  Weight: 71.9 kg

DRUGS (6)
  1. DAUNORUBICIN HCL [Suspect]
     Indication: ACUTE MYELOID LEUKAEMIA
     Dosage: SEE IMAGE
     Route: 042
     Dates: start: 20050810
  2. CYTARABINE [Suspect]
     Dosage: SEE IMAGE
     Route: 042
  3. BUSULFAN [Suspect]
     Dosage: SEE IMAGE
     Dates: start: 20050712, end: 20050715
  4. CYCLOPHOSPHAMIDE [Suspect]
     Dosage: SEE IMAGE
     Route: 042
  5. MESNA [Concomitant]
  6. ALLOGENEIC TRANSPLANT [Suspect]

REACTIONS (7)
  - ABDOMINAL PAIN [None]
  - BLOOD CULTURE POSITIVE [None]
  - DIARRHOEA [None]
  - GRAFT VERSUS HOST DISEASE [None]
  - HYPERTENSION [None]
  - PLATELET COUNT DECREASED [None]
  - PYREXIA [None]
